FAERS Safety Report 13351514 (Version 1)
Quarter: 2017Q1

REPORT INFORMATION
  Report Type: Spontaneous
  Country: US (occurrence: US)
  Receive Date: 20170320
  Receipt Date: 20170320
  Transmission Date: 20170429
  Serious: Yes (Other)
  Sender: FDA-Public Use
  Company Number: US-BECTON DICKINSON-2017BDN00091

PATIENT
  Age: 12 Year
  Sex: Female

DRUGS (7)
  1. BUPIVACAINE. [Concomitant]
     Active Substance: BUPIVACAINE
     Dosage: 15 ML/HR
     Route: 042
  2. MASTISOL LIQUID ADHESIVE [Suspect]
     Active Substance: DEVICE
     Indication: WOUND TREATMENT
     Route: 061
  3. TEGADERM ADHESIVE DRESSING [Suspect]
     Active Substance: 2-HYDROXYETHYL METHACRYLATE
     Route: 061
  4. DERMABOND [Suspect]
     Active Substance: OCRYLATE
     Indication: CATHETER MANAGEMENT
     Route: 061
  5. CHLORHEXIDINE-ALCOHOL [Suspect]
     Active Substance: ALCOHOL\CHLORHEXIDINE GLUCONATE
     Indication: ANTIBIOTIC PROPHYLAXIS
  6. INDUCTION MEDICATIONS [Concomitant]
     Route: 042
  7. ROPIVACAINE [Concomitant]
     Active Substance: ROPIVACAINE

REACTIONS (2)
  - Postoperative wound infection [Recovering/Resolving]
  - Dermatitis contact [Unknown]
